FAERS Safety Report 4428276-5 (Version None)
Quarter: 2004Q3

REPORT INFORMATION
  Report Type: 
  Country: None (occurrence: None)
  Receive Date: 20040813
  Receipt Date: 20040729
  Transmission Date: 20050211
  Serious: Yes (Hospitalization)
  Sender: FDA-Public Use
  Company Number: MEDI-0002095

PATIENT
  Age: 2 Month
  Sex: Male

DRUGS (1)
  1. SYNAGIS [Suspect]
     Indication: ANTIVIRAL PROPHYLAXIS
     Dosage: 43 MG, 1 IN 30 D, INTRAMUSCULAR
     Route: 030
     Dates: start: 20031202, end: 20031202

REACTIONS (3)
  - FEEDING DISORDER [None]
  - NASAL CONGESTION [None]
  - PNEUMONIA ASPIRATION [None]
